FAERS Safety Report 21967620 (Version 1)
Quarter: 2023Q1

REPORT INFORMATION
  Report Type: Spontaneous
  Country: FR (occurrence: FR)
  Receive Date: 20230208
  Receipt Date: 20230208
  Transmission Date: 20230418
  Serious: Yes (Hospitalization)
  Sender: FDA-Public Use
  Company Number: None

PATIENT
  Age: 54 Year
  Sex: Male
  Weight: 92 kg

DRUGS (18)
  1. TRIMEBUTINE MALEATE [Suspect]
     Active Substance: TRIMEBUTINE MALEATE
     Dosage: 150 MG, 1X/DAY
     Route: 042
     Dates: start: 20220802, end: 20220815
  2. PAXLOVID [Suspect]
     Active Substance: NIRMATRELVIR\RITONAVIR
     Indication: COVID-19 treatment
     Dosage: 6 DF, 1X/DAY
     Route: 048
     Dates: start: 20220814, end: 20220819
  3. PROPRANOLOL [Suspect]
     Active Substance: PROPRANOLOL HYDROCHLORIDE
     Dosage: 20 MG, 1X/DAY
     Route: 048
     Dates: start: 20220719, end: 20220815
  4. SPIRONOLACTONE [Suspect]
     Active Substance: SPIRONOLACTONE
     Dosage: 200 MG, 1X/DAY
     Route: 048
     Dates: start: 20220802, end: 20220815
  5. LEVOFLOXACIN [Suspect]
     Active Substance: LEVOFLOXACIN
     Indication: Intervertebral discitis
     Dosage: 1000 MG, 1X/DAY
     Route: 042
     Dates: start: 20220802
  6. LIDOCAINE [Suspect]
     Active Substance: LIDOCAINE
     Dosage: 700 MG, FREQ:12 H;
     Route: 061
     Dates: start: 20220809, end: 20220815
  7. FUNGIZONE [Suspect]
     Active Substance: AMPHOTERICIN B
     Dosage: 3 DF, 1X/DAY
     Route: 048
     Dates: start: 20220802, end: 20220815
  8. IPRATROPIUM [Suspect]
     Active Substance: IPRATROPIUM
     Dosage: 0.5 MG/2 ML, SOLUTION FOR INHALATION VIA NEBULIZER)
     Route: 055
     Dates: start: 20220802, end: 20220815
  9. GABAPENTIN [Suspect]
     Active Substance: GABAPENTIN
     Dosage: 3 DF, 1X/DAY
     Route: 048
     Dates: start: 20220804, end: 20220815
  10. TERBUTALINE [Suspect]
     Active Substance: TERBUTALINE
     Dosage: 5 MG/2 ML, SOLUTION FOR INHALATION VIA NEBULIZER
     Route: 055
     Dates: start: 20220720, end: 20220815
  11. MOVICOL [Suspect]
     Active Substance: POLYETHYLENE GLYCOL 3350\POTASSIUM CHLORIDE\SODIUM BICARBONATE\SODIUM CHLORIDE
     Dosage: 2 DF, 1X/DAY
     Route: 048
     Dates: start: 20220803, end: 20220815
  12. CEFTOBIPROLE [Suspect]
     Active Substance: CEFTOBIPROLE
     Indication: Intervertebral discitis
     Dosage: 2 G, 1X/DAY
     Route: 042
     Dates: start: 20220802
  13. PREDNISONE [Concomitant]
     Active Substance: PREDNISONE
     Dosage: UNK
  14. PANTOPRAZOLE [Concomitant]
     Active Substance: PANTOPRAZOLE
     Dosage: UNK
  15. PHLOROGLUCINOL [Concomitant]
     Active Substance: PHLOROGLUCINOL
     Dosage: UNK
  16. ACETAMINOPHEN [Concomitant]
     Active Substance: ACETAMINOPHEN
     Dosage: UNK
  17. FUROSEMIDE [Concomitant]
     Active Substance: FUROSEMIDE
     Dosage: UNK
  18. CETIRIZINE HYDROCHLORIDE [Concomitant]
     Active Substance: CETIRIZINE HYDROCHLORIDE
     Dosage: UNK

REACTIONS (1)
  - Encephalopathy [Recovered/Resolved]

NARRATIVE: CASE EVENT DATE: 20220815
